FAERS Safety Report 21099731 (Version 1)
Quarter: 2022Q3

REPORT INFORMATION
  Report Type: Spontaneous
  Country: US (occurrence: US)
  Receive Date: 20220719
  Receipt Date: 20220719
  Transmission Date: 20221027
  Serious: No
  Sender: FDA-Public Use
  Company Number: US-MYLANLABS-2022M1048996

PATIENT
  Sex: Female

DRUGS (2)
  1. WIXELA INHUB [Suspect]
     Active Substance: FLUTICASONE PROPIONATE\SALMETEROL XINAFOATE
     Indication: Chronic obstructive pulmonary disease
     Dosage: UNK, BID(250/50 MICROGRAM, TWICE A DAY/2 PUFF TWICE A DAY )
     Route: 055
     Dates: start: 20220524
  2. WIXELA INHUB [Suspect]
     Active Substance: FLUTICASONE PROPIONATE\SALMETEROL XINAFOATE
     Dosage: UNK, BID(250/50 MICROGRAM, TWICE A DAY/2 PUFF TWICE A DAY )
     Route: 055
     Dates: start: 2022

REACTIONS (2)
  - Intentional product misuse [Unknown]
  - Device issue [Unknown]

NARRATIVE: CASE EVENT DATE: 20220524
